FAERS Safety Report 4563106-2 (Version None)
Quarter: 2005Q1

REPORT INFORMATION
  Report Type: 
  Country: None (occurrence: None)
  Receive Date: 20050125
  Receipt Date: 20050113
  Transmission Date: 20050727
  Serious: No
  Sender: FDA-Public Use
  Company Number: DE-2004-033457

PATIENT
  Sex: Female

DRUGS (1)
  1. MIRENA [Suspect]
     Dosage: 20 ?G/DAY, CONT, INTRA-UTERINE
     Route: 015
     Dates: start: 20040601

REACTIONS (2)
  - AUTONOMIC NERVOUS SYSTEM IMBALANCE [None]
  - CIRCULATORY COLLAPSE [None]
